FAERS Safety Report 9413131 (Version 1)
Quarter: 2013Q3

REPORT INFORMATION
  Report Type: Spontaneous
  Country: JP (occurrence: None)
  Receive Date: 20130708
  Receipt Date: 20130708
  Transmission Date: 20140515
  Serious: Yes (Hospitalization)
  Sender: FDA-Public Use
  Company Number: MKT-20120127

PATIENT
  Age: 68 Year
  Sex: Female

DRUGS (2)
  1. DOTAREM [Suspect]
     Indication: NUCLEAR MAGNETIC RESONANCE IMAGING
     Dosage: (NOT OTHERWISE SPECIFIED)
     Route: 042
     Dates: start: 20121003, end: 20121003
  2. OPTIRAY 320 [Suspect]
     Indication: COMPUTERISED TOMOGRAM THORAX
     Dosage: (NOT OTHERWISE SPECIFIED)
     Route: 042
     Dates: start: 20121004, end: 20121004

REACTIONS (1)
  - Erythema multiforme [None]
